FAERS Safety Report 6124208-2 (Version None)
Quarter: 2009Q1

REPORT INFORMATION
  Report Type: 
  Country: None (occurrence: None)
  Receive Date: 20090317
  Receipt Date: 20090306
  Transmission Date: 20090719
  Serious: No
  Sender: FDA-Public Use
  Company Number: 20096368

PATIENT
  Age: 10 Year
  Sex: Female

DRUGS (1)
  1. LIORESAL [Suspect]
     Indication: MUSCLE SPASTICITY
     Dosage: 211.9 MCG, DAILY, INTRATHECAL
     Route: 037

REACTIONS (5)
  - IMPLANT SITE SWELLING [None]
  - INCISION SITE COMPLICATION [None]
  - INCISION SITE INFECTION [None]
  - WOUND COMPLICATION [None]
  - WOUND SECRETION [None]
